FAERS Safety Report 14208091 (Version 4)
Quarter: 2021Q1

REPORT INFORMATION
  Report Type: Report from Study
  Country: US (occurrence: US)
  Receive Date: 20171121
  Receipt Date: 20210213
  Transmission Date: 20210419
  Serious: Yes (Death, Other)
  Sender: FDA-Public Use
  Company Number: PHEH2017US037197

PATIENT
  Sex: Female

DRUGS (5)
  1. KYMRIAH [Suspect]
     Active Substance: TISAGENLECLEUCEL
     Indication: ACUTE LYMPHOCYTIC LEUKAEMIA REFRACTORY
     Dosage: UNK UNK, ONCE/SINGLE
     Route: 042
     Dates: start: 20171109
  2. TOCILIZUMAB. [Concomitant]
     Active Substance: TOCILIZUMAB
     Indication: CYTOKINE RELEASE SYNDROME
     Dosage: UNK
     Route: 042
     Dates: start: 20171113
  3. PREDNISONE. [Concomitant]
     Active Substance: PREDNISONE
     Indication: CYTOKINE RELEASE SYNDROME
     Dosage: UNK
     Route: 065
     Dates: start: 20171114
  4. FLUDARABINE [Concomitant]
     Active Substance: FLUDARABINE PHOSPHATE
     Indication: CHEMOTHERAPY
     Dosage: UNK
     Route: 065
  5. CYCLOPHOSPHAMIDE. [Concomitant]
     Active Substance: CYCLOPHOSPHAMIDE
     Indication: CHEMOTHERAPY
     Dosage: UNK
     Route: 065

REACTIONS (12)
  - Cytokine release syndrome [Fatal]
  - Hepatic failure [Fatal]
  - Renal failure [Fatal]
  - Depressed level of consciousness [Unknown]
  - Neutropenia [Unknown]
  - Acute lymphocytic leukaemia refractory [Fatal]
  - Malignant neoplasm progression [Fatal]
  - Thrombocytopenia [Unknown]
  - White blood cell count increased [Unknown]
  - Hallucination [Unknown]
  - Cytopenia [Unknown]
  - Neurotoxicity [Recovered/Resolved]
